FAERS Safety Report 9285292 (Version 1)
Quarter: 2013Q2

REPORT INFORMATION
  Report Type: Report from Study
  Country: US (occurrence: US)
  Receive Date: 20130513
  Receipt Date: 20130513
  Transmission Date: 20140414
  Serious: Yes (Hospitalization)
  Sender: FDA-Public Use
  Company Number: US-ASTRAZENECA-2013SE11742

PATIENT
  Age: 66 Year
  Sex: Female

DRUGS (2)
  1. SYMBICORT PMDI [Suspect]
     Indication: CHRONIC OBSTRUCTIVE PULMONARY DISEASE
     Dosage: UNKNOWN
     Route: 055
     Dates: end: 2013
  2. QVAR [Suspect]
     Route: 065

REACTIONS (4)
  - Local swelling [Unknown]
  - Local swelling [Unknown]
  - Dyspnoea [Unknown]
  - Swelling [Unknown]
